FAERS Safety Report 7302737-3 (Version None)
Quarter: 2011Q1

REPORT INFORMATION
  Report Type: 
  Country: None (occurrence: None)
  Receive Date: 20110218
  Receipt Date: 20110214
  Transmission Date: 20110831
  Serious: Yes (Death)
  Sender: FDA-Public Use
  Company Number: US-ABBOTT-10P-163-0639036-00

PATIENT
  Sex: Male
  Weight: 65.376 kg

DRUGS (9)
  1. AZATHIOPRINE [Suspect]
     Indication: CROHN'S DISEASE
  2. MERCAPTOPURINE [Suspect]
     Indication: CROHN'S DISEASE
  3. ANTIBIOTICS [Concomitant]
     Indication: CROHN'S DISEASE
  4. HUMIRA [Suspect]
     Indication: CROHN'S DISEASE
  5. REMICADE [Suspect]
     Indication: CROHN'S DISEASE
     Route: 042
  6. MESALAMINE [Concomitant]
     Indication: CROHN'S DISEASE
  7. PREDNISONE [Concomitant]
     Indication: PRODUCT USED FOR UNKNOWN INDICATION
  8. ANTIDEPRESSANTS [Concomitant]
     Indication: CROHN'S DISEASE
  9. NARCOTIC ANALGESICS NOS [Concomitant]
     Indication: CROHN'S DISEASE

REACTIONS (1)
  - SMALL INTESTINE CARCINOMA [None]
